FAERS Safety Report 16485795 (Version 1)
Quarter: 2019Q2

REPORT INFORMATION
  Report Type: Spontaneous
  Country: CA (occurrence: CA)
  Receive Date: 20190627
  Receipt Date: 20190627
  Transmission Date: 20190711
  Serious: Yes (Hospitalization, Other)
  Sender: FDA-Public Use
  Company Number: CA-ASTRAZENECA-2019SE90819

PATIENT
  Age: 23033 Day
  Sex: Female

DRUGS (1)
  1. TAGRISSO [Suspect]
     Active Substance: OSIMERTINIB
     Route: 048

REACTIONS (3)
  - Loss of consciousness [Unknown]
  - Seizure [Unknown]
  - Lung cancer metastatic [Unknown]

NARRATIVE: CASE EVENT DATE: 20190618
